FAERS Safety Report 23395868 (Version 1)
Quarter: 2024Q1

REPORT INFORMATION
  Report Type: Spontaneous
  Country: US (occurrence: None)
  Receive Date: 20240112
  Receipt Date: 20240112
  Transmission Date: 20240409
  Serious: No
  Sender: FDA-Public Use
  Company Number: 2024A008098

PATIENT
  Sex: Male

DRUGS (2)
  1. CALQUENCE [Suspect]
     Active Substance: ACALABRUTINIB
     Route: 048
     Dates: end: 20240102
  2. INDOMETHACIN [Concomitant]
     Active Substance: INDOMETHACIN

REACTIONS (2)
  - Intentional product misuse [Unknown]
  - Gout [Unknown]
